FAERS Safety Report 7164617-6 (Version None)
Quarter: 2010Q4

REPORT INFORMATION
  Report Type: 
  Country: None (occurrence: None)
  Receive Date: 20101203
  Receipt Date: 20101115
  Transmission Date: 20110411
  Serious: Yes (Other)
  Sender: FDA-Public Use
  Company Number: JPI-P-013036

PATIENT
  Age: 57 Year
  Sex: Female

DRUGS (5)
  1. XYREM [Suspect]
     Indication: SLEEP APNOEA SYNDROME
     Dosage: 6 GM (3 GM,2 IN 1 D),ORAL ,(TITRATING DOSE),ORAL,  9 GM (4.5 GM,2 IN 1 D),ORAL
     Route: 048
     Dates: start: 20100101, end: 20100101
  2. XYREM [Suspect]
     Indication: SLEEP APNOEA SYNDROME
     Dosage: 6 GM (3 GM,2 IN 1 D),ORAL ,(TITRATING DOSE),ORAL,  9 GM (4.5 GM,2 IN 1 D),ORAL
     Route: 048
     Dates: start: 20101015, end: 20100101
  3. XYREM [Suspect]
     Indication: SLEEP APNOEA SYNDROME
     Dosage: 6 GM (3 GM,2 IN 1 D),ORAL ,(TITRATING DOSE),ORAL,  9 GM (4.5 GM,2 IN 1 D),ORAL
     Route: 048
     Dates: start: 20100101
  4. VALSARTAN [Concomitant]
  5. ESOMEPRAZOLE [Concomitant]

REACTIONS (1)
  - CARDIAC PACEMAKER INSERTION [None]
